FAERS Safety Report 12709061 (Version 1)
Quarter: 2016Q3

REPORT INFORMATION
  Report Type: Spontaneous
  Country: US (occurrence: US)
  Receive Date: 20160901
  Receipt Date: 20160901
  Transmission Date: 20161109
  Serious: No
  Sender: FDA-Public Use
  Company Number: US-JAZZ-2016-US-008348

PATIENT
  Sex: Female

DRUGS (62)
  1. XYREM [Suspect]
     Active Substance: SODIUM OXYBATE
     Dosage: DOSE ADJUSTMENTS
     Route: 048
  2. XYREM [Suspect]
     Active Substance: SODIUM OXYBATE
     Dosage: 3.5 G, SECOND DOSE
     Route: 048
     Dates: start: 200910, end: 2011
  3. XYREM [Suspect]
     Active Substance: SODIUM OXYBATE
     Dosage: 5 G, FIRST DOSE
     Route: 048
     Dates: start: 201202, end: 201203
  4. XYREM [Suspect]
     Active Substance: SODIUM OXYBATE
     Dosage: 3.5 G, THIRD DOSE
     Route: 048
     Dates: start: 201202, end: 201203
  5. XYREM [Suspect]
     Active Substance: SODIUM OXYBATE
     Dosage: 4.5 G, BID
     Route: 048
     Dates: start: 201404
  6. METAMUCIL [Concomitant]
     Active Substance: PLANTAGO SEED
  7. MIRALAX [Concomitant]
     Active Substance: POLYETHYLENE GLYCOL 3350
  8. VOLTAREN [Concomitant]
     Active Substance: DICLOFENAC SODIUM
  9. CELEBREX [Concomitant]
     Active Substance: CELECOXIB
  10. CYMBALTA [Concomitant]
     Active Substance: DULOXETINE HYDROCHLORIDE
  11. FABIOR [Concomitant]
     Active Substance: TAZAROTENE
  12. HYDROCHLOROTHIAZIDE. [Concomitant]
     Active Substance: HYDROCHLOROTHIAZIDE
  13. OXYGEN. [Concomitant]
     Active Substance: OXYGEN
  14. STOOL SOFTENER [Concomitant]
     Active Substance: DOCUSATE CALCIUM
  15. OXYCONTIN [Concomitant]
     Active Substance: OXYCODONE HYDROCHLORIDE
  16. LABETALOL HCL [Concomitant]
     Active Substance: LABETALOL HYDROCHLORIDE
  17. POTASSIUM CL ER [Concomitant]
     Active Substance: POTASSIUM CHLORIDE
  18. TOVIAZ [Concomitant]
     Active Substance: FESOTERODINE FUMARATE
  19. CRESTOR [Concomitant]
     Active Substance: ROSUVASTATIN CALCIUM
  20. OPANA ER [Concomitant]
     Active Substance: OXYMORPHONE HYDROCHLORIDE
  21. EVOXAC [Concomitant]
     Active Substance: CEVIMELINE HYDROCHLORIDE
  22. HYDROXYZINE HCL [Concomitant]
     Active Substance: HYDROXYZINE HYDROCHLORIDE
  23. VITAMIN D3 [Concomitant]
     Active Substance: CHOLECALCIFEROL
  24. ADDERALL XR [Concomitant]
     Active Substance: AMPHETAMINE ASPARTATE\AMPHETAMINE SULFATE\DEXTROAMPHETAMINE SACCHARATE\DEXTROAMPHETAMINE SULFATE
  25. LATISSE [Concomitant]
     Active Substance: BIMATOPROST
  26. CLOTRIMAZOLE. [Concomitant]
     Active Substance: CLOTRIMAZOLE
  27. XYREM [Suspect]
     Active Substance: SODIUM OXYBATE
     Dosage: 5 G, FIRST DOSE
     Route: 048
     Dates: start: 200910, end: 2011
  28. ASPIRIN. [Concomitant]
     Active Substance: ASPIRIN
  29. LIDOCAINE. [Concomitant]
     Active Substance: LIDOCAINE
  30. XYREM [Suspect]
     Active Substance: SODIUM OXYBATE
     Dosage: 3.5 G, THIRD DOSE
     Route: 048
     Dates: start: 200910, end: 2011
  31. FORTEO [Concomitant]
     Active Substance: TERIPARATIDE
  32. LAMISIL [Concomitant]
     Active Substance: TERBINAFINE HYDROCHLORIDE
  33. PRAMIPEXOLE. [Concomitant]
     Active Substance: PRAMIPEXOLE
  34. SIMVASTATIN. [Concomitant]
     Active Substance: SIMVASTATIN
  35. PREDNISONE. [Concomitant]
     Active Substance: PREDNISONE
  36. SPIRONOLACTONE. [Concomitant]
     Active Substance: SPIRONOLACTONE
  37. VIACTIV MULTI VITAMIN [Concomitant]
  38. VITAMIN K [Concomitant]
     Active Substance: PHYTONADIONE
  39. XYREM [Suspect]
     Active Substance: SODIUM OXYBATE
     Dosage: 3.5 G, SECOND DOSE
     Route: 048
     Dates: start: 201202, end: 201203
  40. TRIAMCINOLONE [Concomitant]
     Active Substance: TRIAMCINOLONE
  41. FLUTICASONE PROPIONATE. [Concomitant]
     Active Substance: FLUTICASONE PROPIONATE
  42. RECLAST [Concomitant]
     Active Substance: ZOLEDRONIC ACID
  43. DETROL LA [Concomitant]
     Active Substance: TOLTERODINE TARTRATE
  44. OPSUMIT [Concomitant]
     Active Substance: MACITENTAN
  45. TOPAMAX [Concomitant]
     Active Substance: TOPIRAMATE
  46. ZOFRAN ODT [Concomitant]
     Active Substance: ONDANSETRON HYDROCHLORIDE
  47. DILAUDID [Concomitant]
     Active Substance: HYDROMORPHONE HYDROCHLORIDE
  48. IPRATROPIUM BROMIDE. [Concomitant]
     Active Substance: IPRATROPIUM BROMIDE
  49. XYREM [Suspect]
     Active Substance: SODIUM OXYBATE
     Indication: NARCOLEPSY
     Dosage: 3 G, BID
     Route: 048
     Dates: start: 200505, end: 200704
  50. XYREM [Suspect]
     Active Substance: SODIUM OXYBATE
     Dosage: DOSE ADJUSTMNETS
     Route: 048
  51. LYRICA [Concomitant]
     Active Substance: PREGABALIN
  52. MOVANTIK [Concomitant]
     Active Substance: NALOXEGOL OXALATE
  53. CLONIDINE HCL [Concomitant]
     Active Substance: CLONIDINE HYDROCHLORIDE
  54. FERROUS FUMARATE [Concomitant]
     Active Substance: FERROUS FUMARATE
  55. VIACTIV [Concomitant]
     Active Substance: CALCIUM\VITAMIN D\VITAMIN K5
  56. FLUOROMETHOLONE. [Concomitant]
     Active Substance: FLUOROMETHOLONE
  57. FOLIC ACID. [Concomitant]
     Active Substance: FOLIC ACID
  58. NEXIUM [Concomitant]
     Active Substance: ESOMEPRAZOLE MAGNESIUM
  59. PERCOCET [Concomitant]
     Active Substance: ACETAMINOPHEN\OXYCODONE HYDROCHLORIDE
  60. AMRIX ER [Concomitant]
  61. OXYCODONE HCL IR [Concomitant]
  62. BARIUM SULFATE [Concomitant]
     Active Substance: BARIUM SULFATE

REACTIONS (2)
  - Bone disorder [Recovering/Resolving]
  - Infection [Unknown]
